FAERS Safety Report 4280508-2 (Version None)
Quarter: 2004Q1

REPORT INFORMATION
  Report Type: 
  Country: None (occurrence: None)
  Receive Date: 20040127
  Receipt Date: 20040109
  Transmission Date: 20041129
  Serious: Yes (Hospitalization, Disabling)
  Sender: FDA-Public Use
  Company Number: 200312929FR

PATIENT
  Age: 28 Year
  Sex: Male
  Weight: 88 kg

DRUGS (4)
  1. LANTUS [Suspect]
     Indication: DIABETES MELLITUS INSULIN-DEPENDENT
     Dosage: 34 IU/DAY SC
     Route: 058
     Dates: start: 20020311
  2. HUMALOG [Suspect]
     Indication: DIABETES MELLITUS INSULIN-DEPENDENT
     Dosage: SC
     Route: 058
  3. DEPAKENE [Concomitant]
  4. HYPNOVEL [Concomitant]

REACTIONS (4)
  - AGITATION [None]
  - EPILEPSY [None]
  - HYPOGLYCAEMIA [None]
  - MONOPARESIS [None]
